FAERS Safety Report 5569800-9 (Version None)
Quarter: 2007Q4

REPORT INFORMATION
  Report Type: 
  Country: None (occurrence: None)
  Receive Date: 20071220
  Receipt Date: 20070118
  Transmission Date: 20080405
  Serious: No
  Sender: FDA-Public Use
  Company Number: US-ABBOTT-07P-163-0357477-00

PATIENT
  Sex: Female
  Weight: 79.45 kg

DRUGS (1)
  1. OMNICEF [Suspect]
     Indication: SINUSITIS
     Dosage: FOR 15 DAYS
     Route: 048
     Dates: start: 20070102, end: 20070114

REACTIONS (4)
  - BURNING SENSATION [None]
  - MUSCLE DISORDER [None]
  - MUSCLE TIGHTNESS [None]
  - MYALGIA [None]
